FAERS Safety Report 5139948-1 (Version None)
Quarter: 2006Q4

REPORT INFORMATION
  Report Type: 
  Country: None (occurrence: None)
  Receive Date: 20061031
  Receipt Date: 20061017
  Transmission Date: 20070319
  Serious: Yes (Hospitalization)
  Sender: FDA-Public Use
  Company Number: US-JNJFOC-20061004281

PATIENT
  Sex: Female
  Weight: 56.25 kg

DRUGS (4)
  1. FENTANYL TRANSDERMAL SYSTEM [Suspect]
     Route: 062
  2. FENTANYL TRANSDERMAL SYSTEM [Suspect]
     Indication: CANCER PAIN
     Route: 062
  3. DURAGESIC-100 [Suspect]
     Indication: CANCER PAIN
     Route: 062
  4. TOPOTECAN [Concomitant]
     Indication: OVARIAN CANCER
     Route: 065

REACTIONS (2)
  - CARBOHYDRATE ANTIGEN 125 INCREASED [None]
  - CARDIAC FAILURE CONGESTIVE [None]
